FAERS Safety Report 10355978 (Version 5)
Quarter: 2014Q4

REPORT INFORMATION
  Report Type: Spontaneous
  Country: FR (occurrence: FR)
  Receive Date: 20140801
  Receipt Date: 20141201
  Transmission Date: 20150528
  Serious: Yes (Life-Threatening, Hospitalization, Other)
  Sender: FDA-Public Use
  Company Number: FR-AMGEN-FRASP2014057493

PATIENT
  Age: 50 Year
  Sex: Male

DRUGS (2)
  1. ENDOXAN                            /00021101/ [Suspect]
     Active Substance: CYCLOPHOSPHAMIDE
     Indication: PRODUCT USED FOR UNKNOWN INDICATION
     Dosage: 12.5 MG/KG EVERY FORTNIGHT (FIRST CYCLE ON 30APR) , CYCLICAL
     Route: 065
  2. ENBREL [Suspect]
     Active Substance: ETANERCEPT
     Indication: PSORIATIC ARTHROPATHY
     Dosage: 50 MG, WEEKLY
     Route: 058
     Dates: start: 201203, end: 20140222

REACTIONS (1)
  - Granulomatosis with polyangiitis [Not Recovered/Not Resolved]

NARRATIVE: CASE EVENT DATE: 201402
